FAERS Safety Report 5445430-4 (Version None)
Quarter: 2007Q3

REPORT INFORMATION
  Report Type: 
  Country: None (occurrence: None)
  Receive Date: 20070906
  Receipt Date: 20070703
  Transmission Date: 20080115
  Serious: No
  Sender: FDA-Public Use
  Company Number: A0661434A

PATIENT
  Age: 92 Year
  Sex: Female

DRUGS (4)
  1. REQUIP [Suspect]
     Indication: RESTLESS LEGS SYNDROME
     Dosage: 1MG TWICE PER DAY
     Route: 048
     Dates: start: 20070622, end: 20070702
  2. DIOVAN [Concomitant]
  3. ASPIRIN [Concomitant]
  4. AMBIEN [Concomitant]
     Route: 048

REACTIONS (2)
  - DIZZINESS [None]
  - RESTLESS LEGS SYNDROME [None]
